FAERS Safety Report 4941306-7 (Version None)
Quarter: 2006Q1

REPORT INFORMATION
  Report Type: 
  Country: None (occurrence: None)
  Receive Date: 20060307
  Receipt Date: 20060221
  Transmission Date: 20060701
  Serious: Yes (Hospitalization)
  Sender: FDA-Public Use
  Company Number: 2006-0033-EUR

PATIENT
  Age: 67 Year
  Sex: Female

DRUGS (2)
  1. LIDOCAINE AND PRILOCAINE [Suspect]
     Indication: DENTAL TREATMENT
     Dosage: (1 DOSAGE FORMS, ONCE)
     Dates: start: 20051013, end: 20051013
  2. EFFORTIL (ETILEFRINE HYDROCHLORIDE) (TABLETS) [Concomitant]

REACTIONS (5)
  - COUGH [None]
  - DYSPNOEA [None]
  - SWELLING FACE [None]
  - SWOLLEN TONGUE [None]
  - THROAT IRRITATION [None]
